FAERS Safety Report 7302246-1 (Version None)
Quarter: 2011Q1

REPORT INFORMATION
  Report Type: 
  Country: None (occurrence: None)
  Receive Date: 20110218
  Receipt Date: 20110216
  Transmission Date: 20110831
  Serious: Yes (Hospitalization)
  Sender: FDA-Public Use
  Company Number: US-ABBOTT-11P-163-0705584-00

PATIENT
  Sex: Male
  Weight: 90.8 kg

DRUGS (3)
  1. ACTOS [Concomitant]
     Indication: DIABETES MELLITUS
  2. NIASPAN [Suspect]
     Indication: BLOOD CHOLESTEROL INCREASED
  3. METFORMIN HYDROCHLORIDE [Concomitant]
     Indication: DIABETES MELLITUS

REACTIONS (4)
  - BLADDER IRRITATION [None]
  - PROSTATECTOMY [None]
  - URETHRITIS [None]
  - PROSTATIC DISORDER [None]
